FAERS Safety Report 18623275 (Version 1)
Quarter: 2020Q4

REPORT INFORMATION
  Report Type: Spontaneous
  Country: US (occurrence: US)
  Receive Date: 20201216
  Receipt Date: 20201216
  Transmission Date: 20210114
  Serious: Yes (Hospitalization)
  Sender: FDA-Public Use
  Company Number: None

PATIENT
  Age: 79 Year
  Sex: Male
  Weight: 93.15 kg

DRUGS (4)
  1. JARDIANCE [Suspect]
     Active Substance: EMPAGLIFLOZIN
     Indication: TYPE 2 DIABETES MELLITUS
     Route: 048
     Dates: start: 20200817, end: 20200903
  2. GLIPIZIDE. [Concomitant]
     Active Substance: GLIPIZIDE
  3. TOUJEO [Concomitant]
     Active Substance: INSULIN GLARGINE
  4. METFORMIN [Concomitant]
     Active Substance: METFORMIN HYDROCHLORIDE

REACTIONS (5)
  - Memory impairment [None]
  - Abnormal behaviour [None]
  - Therapy change [None]
  - Glomerular filtration rate decreased [None]
  - Acute kidney injury [None]

NARRATIVE: CASE EVENT DATE: 20200828
